FAERS Safety Report 8602689-X (Version None)
Quarter: 2012Q3

REPORT INFORMATION
  Report Type: 
  Country: None (occurrence: None)
  Receive Date: 20120817
  Receipt Date: 20120813
  Transmission Date: 20120928
  Serious: Yes (Other)
  Sender: FDA-Public Use
  Company Number: US-UCBSA-062677

PATIENT
  Age: 50 Year
  Sex: Female

DRUGS (5)
  1. NEXIUM [Concomitant]
     Indication: GASTROOESOPHAGEAL REFLUX DISEASE
  2. VIMPAT [Suspect]
     Indication: CONVULSION
     Dosage: AM
     Dates: start: 20120501
  3. ESTRADIOL [Concomitant]
     Indication: OESTROGEN THERAPY
  4. LEVOXYL [Concomitant]
     Indication: THYROID THERAPY
  5. TRILEPTAL [Concomitant]

REACTIONS (2)
  - FUNGAL INFECTION [None]
  - CYSTITIS [None]
